FAERS Safety Report 8208354-5 (Version None)
Quarter: 2012Q1

REPORT INFORMATION
  Report Type: 
  Country: None (occurrence: None)
  Receive Date: 20120314
  Receipt Date: 20120305
  Transmission Date: 20120608
  Serious: Yes (Other)
  Sender: FDA-Public Use
  Company Number: BR-SANOFI-AVENTIS-2012SA015054

PATIENT
  Age: 76 Year
  Sex: Male
  Weight: 72 kg

DRUGS (6)
  1. NPH INSULIN [Concomitant]
     Route: 058
     Dates: start: 20100101
  2. LEVOTHYROXINE SODIUM [Concomitant]
     Indication: HYPOTHYROIDISM
     Route: 048
     Dates: start: 20020101
  3. APIDRA [Suspect]
     Route: 058
  4. ATENOLOL [Concomitant]
     Route: 048
     Dates: start: 20090101
  5. APIDRA [Suspect]
     Route: 058
     Dates: start: 20100101
  6. LOSARTAN POTASSIUM [Concomitant]
     Route: 048
     Dates: start: 20090101

REACTIONS (4)
  - ARTERIAL OCCLUSIVE DISEASE [None]
  - WEIGHT DECREASED [None]
  - HAEMATOMA [None]
  - INJECTION SITE PAIN [None]
